FAERS Safety Report 18544805 (Version 2)
Quarter: 2020Q4

REPORT INFORMATION
  Report Type: Spontaneous
  Country: PL (occurrence: PL)
  Receive Date: 20201125
  Receipt Date: 20201207
  Transmission Date: 20210114
  Serious: Yes (Other)
  Sender: FDA-Public Use
  Company Number: PL-PFIZER INC-2020460261

PATIENT
  Age: 47 Year
  Sex: Female

DRUGS (13)
  1. TRASTUZUMAB. [Suspect]
     Active Substance: TRASTUZUMAB
     Dosage: UNK UNK, CYCLIC (37 CYCLES),
     Route: 065
     Dates: start: 20160329
  2. PACLITAXEL. [Suspect]
     Active Substance: PACLITAXEL
     Dosage: UNK, CYCLIC (1,8,15 REGIMEN EVERY 28 DAYS)
     Route: 065
     Dates: start: 20191023, end: 201911
  3. GEMCITABINE. [Suspect]
     Active Substance: GEMCITABINE
     Indication: INVASIVE DUCTAL BREAST CARCINOMA
     Dosage: UNK, CYCLIC (6 CYCLES)
     Route: 065
     Dates: start: 20190515
  4. PACLITAXEL. [Suspect]
     Active Substance: PACLITAXEL
     Indication: INVASIVE DUCTAL BREAST CARCINOMA
     Dosage: UNK, CYCLIC (3 ADMINISTRATIONS)
     Route: 065
     Dates: start: 20140117
  5. KADCYLA [Suspect]
     Active Substance: ADO-TRASTUZUMAB EMTANSINE
     Indication: INVASIVE DUCTAL BREAST CARCINOMA
     Dosage: 230 MG/KG, AT THE TIME OF THE EVENTS CYCLIC (17 CYCLES)
     Route: 042
     Dates: start: 20191105
  6. LAPATINIB [Suspect]
     Active Substance: LAPATINIB
     Indication: INVASIVE DUCTAL BREAST CARCINOMA
     Route: 065
  7. CARBOPLATIN. [Suspect]
     Active Substance: CARBOPLATIN
     Indication: INVASIVE DUCTAL BREAST CARCINOMA
     Dosage: UNK UNK, CYCLIC (EVERY 7 DAYS, 12 CYCLES)
     Route: 065
     Dates: start: 20171023
  8. PACLITAXEL. [Suspect]
     Active Substance: PACLITAXEL
     Dosage: UNK, CYCLIC (10 CYCLES WITH TRASTUZUMAB)
     Route: 065
     Dates: start: 20140211
  9. TRASTUZUMAB. [Suspect]
     Active Substance: TRASTUZUMAB
     Indication: INVASIVE DUCTAL BREAST CARCINOMA
     Dosage: UNK UNK, CYCLIC 10 CYCLES WITH PACLITAXEL)
     Route: 065
     Dates: start: 20140211
  10. VINORELBINE TARTRATE. [Suspect]
     Active Substance: VINORELBINE TARTRATE
     Indication: INVASIVE DUCTAL BREAST CARCINOMA
     Dosage: UNK, CYCLIC (4 CYCLES)
     Route: 048
  11. CAPECITABINE. [Suspect]
     Active Substance: CAPECITABINE
     Indication: INVASIVE DUCTAL BREAST CARCINOMA
     Dosage: UNK, CYCLIC (19 CYCLES)
     Route: 065
     Dates: start: 20160405, end: 20170420
  12. ENDOXAN [CYCLOPHOSPHAMIDE] [Suspect]
     Active Substance: CYCLOPHOSPHAMIDE
     Indication: INVASIVE DUCTAL BREAST CARCINOMA
     Route: 065
     Dates: start: 201801
  13. METHOTREXATE. [Suspect]
     Active Substance: METHOTREXATE
     Indication: INVASIVE DUCTAL BREAST CARCINOMA
     Route: 065
     Dates: start: 201801

REACTIONS (16)
  - Temporomandibular joint syndrome [Unknown]
  - Neck pain [Unknown]
  - Gastric neoplasm [Unknown]
  - Dizziness [Unknown]
  - Pain [Recovered/Resolved]
  - Asthenia [Unknown]
  - Depressed mood [Unknown]
  - Herpes zoster [Unknown]
  - Hepatotoxicity [Unknown]
  - Breast disorder [Unknown]
  - Oropharyngeal pain [Unknown]
  - Second primary malignancy [Unknown]
  - Soft tissue disorder [Unknown]
  - Dysphagia [Unknown]
  - Computerised tomogram thorax abnormal [Unknown]
  - Blood pressure increased [Recovering/Resolving]

NARRATIVE: CASE EVENT DATE: 201712
